FAERS Safety Report 9647181 (Version 1)
Quarter: 2013Q4

REPORT INFORMATION
  Report Type: Spontaneous
  Country: US (occurrence: US)
  Receive Date: 20131027
  Receipt Date: 20131027
  Transmission Date: 20140711
  Serious: No
  Sender: FDA-Public Use
  Company Number: US-PURDUE-USA-2013-0106349

PATIENT
  Sex: Female

DRUGS (4)
  1. OXYCONTIN (NDA 22-272) [Suspect]
     Indication: BACK PAIN
     Dosage: 30 MG, SIX TIMES A DAY
     Route: 048
     Dates: start: 20130729
  2. EFFEXOR [Concomitant]
     Indication: DEPRESSION
     Dosage: 187.5 MG, QD
     Route: 048
  3. NEXIUM                             /01479302/ [Concomitant]
     Indication: GASTROOESOPHAGEAL REFLUX DISEASE
     Dosage: 1 TABLET, QD
     Route: 048
  4. DIOVAN [Concomitant]
     Indication: HYPERTENSION
     Dosage: 80/12.5 MG,1 TABLET, QD
     Route: 048

REACTIONS (1)
  - Nausea [Not Recovered/Not Resolved]
